FAERS Safety Report 4469976-0 (Version None)
Quarter: 2004Q4

REPORT INFORMATION
  Report Type: 
  Country: None (occurrence: None)
  Receive Date: 20041008
  Receipt Date: 20040930
  Transmission Date: 20050328
  Serious: Yes (Other)
  Sender: FDA-Public Use
  Company Number: PHFR2004GB03634

PATIENT
  Sex: Male

DRUGS (2)
  1. TEGRETOL [Suspect]
     Dosage: 400 MG, BID
     Route: 048
  2. BENDROFLUMETHIAZIDE [Suspect]

REACTIONS (1)
  - CONVULSION [None]
